FAERS Safety Report 19981173 (Version 1)
Quarter: 2021Q4

REPORT INFORMATION
  Report Type: Spontaneous
  Country: FR (occurrence: FR)
  Receive Date: 20211021
  Receipt Date: 20211021
  Transmission Date: 20220304
  Serious: Yes (Other)
  Sender: FDA-Public Use
  Company Number: None

PATIENT
  Age: 57 Year
  Sex: Female

DRUGS (2)
  1. XANAX [Interacting]
     Active Substance: ALPRAZOLAM
     Dosage: 4 MG, 1X/DAY
     Route: 048
  2. ALCOHOL [Interacting]
     Active Substance: ALCOHOL
     Dosage: 12 IU, DAILY (2 LITERS OF BEERS AT 8? FOR SEVERAL YEARS)
     Route: 048

REACTIONS (2)
  - Drug dependence [Not Recovered/Not Resolved]
  - Alcohol interaction [Unknown]
